FAERS Safety Report 9519233 (Version 1)
Quarter: 2013Q1

REPORT INFORMATION
  Report Type: Spontaneous
  Country: US (occurrence: None)
  Receive Date: 20130305
  Receipt Date: 20130305
  Transmission Date: 20140127
  Serious: Yes (Other)
  Sender: FDA-Public Use
  Company Number: 163-21880-12110366

PATIENT
  Age: 54 Year
  Sex: Female
  Weight: 90.72 kg

DRUGS (6)
  1. REVLIMID [Suspect]
     Indication: PLASMA CELL MYELOMA
     Dosage: 25 MG, 21 IN 21 D, PO
     Route: 048
     Dates: start: 201112
  2. ZOLEDRONIC ACID (ZOLEDRONIC ACID) (INJECTION) [Concomitant]
  3. ENOXAPARIN (ENOXAPARIN) (UNKNOWN) [Concomitant]
  4. AMLODIPINE (AMLODIPOINE) (UNKNOWN) [Concomitant]
  5. METFORM (METFORMIN) (UNKNOWN) [Concomitant]
  6. DEXAMETHASONE (DEXAMETHASONE) (4 MILLIGRAM, UNKNOWN) [Concomitant]

REACTIONS (6)
  - Thrombosis [None]
  - Constipation [None]
  - Energy increased [None]
  - Hordeolum [None]
  - Bradyphrenia [None]
  - Fatigue [None]
